FAERS Safety Report 25867504 (Version 3)
Quarter: 2025Q4

REPORT INFORMATION
  Report Type: Spontaneous
  Country: US (occurrence: US)
  Receive Date: 20251001
  Receipt Date: 20251231
  Transmission Date: 20260118
  Serious: Yes (Hospitalization)
  Sender: NOBELPHARMA
  Company Number: US-NPA-2025-AER-01612

PATIENT
  Sex: Male

DRUGS (6)
  1. HYFTOR [Suspect]
     Active Substance: SIROLIMUS
     Indication: Benign neoplasm
     Route: 061
     Dates: start: 20230912
  2. HYFTOR [Suspect]
     Active Substance: SIROLIMUS
     Indication: Tuberous sclerosis complex
     Route: 061
  3. AZITHROMYCIN [Concomitant]
     Active Substance: AZITHROMYCIN
  4. BASAGLAR [Concomitant]
     Active Substance: INSULIN GLARGINE
  5. MONTELUKAST SODIUM [Concomitant]
     Active Substance: MONTELUKAST SODIUM
  6. ZONISAMIDE [Concomitant]
     Active Substance: ZONISAMIDE

REACTIONS (4)
  - Seizure [Unknown]
  - Diabetes mellitus [Unknown]
  - Product dose omission issue [Unknown]
  - Off label use [Unknown]
